FAERS Safety Report 6189950-6 (Version None)
Quarter: 2009Q2

REPORT INFORMATION
  Report Type: 
  Country: None (occurrence: None)
  Receive Date: 20090514
  Receipt Date: 20090505
  Transmission Date: 20091009
  Serious: Yes (Other)
  Sender: FDA-Public Use
  Company Number: PHHY2009BR13506

PATIENT
  Sex: Female

DRUGS (4)
  1. TEGRETOL [Suspect]
     Indication: NEURALGIA
     Dosage: 200 MG
     Route: 048
  2. ANAFRANIL [Suspect]
     Indication: PANIC DISORDER
     Route: 048
  3. DIAZEPAM [Concomitant]
     Indication: NEURALGIA
     Dosage: UNK
  4. PAMELOR [Concomitant]
     Indication: PAIN

REACTIONS (2)
  - INTERVERTEBRAL DISC PROTRUSION [None]
  - PAIN [None]
